FAERS Safety Report 9250270 (Version 5)
Quarter: 2014Q2

REPORT INFORMATION
  Report Type: Spontaneous
  Country: US (occurrence: US)
  Receive Date: 20130424
  Receipt Date: 20140502
  Transmission Date: 20141212
  Serious: Yes (Hospitalization, Other)
  Sender: FDA-Public Use
  Company Number: US-ASTRAZENECA-2013SE27371

PATIENT
  Age: 63 Year
  Sex: Female

DRUGS (21)
  1. NEXIUM [Suspect]
     Indication: GASTROOESOPHAGEAL REFLUX DISEASE
     Route: 048
     Dates: start: 200710, end: 201111
  2. NEXIUM [Suspect]
     Indication: GASTROOESOPHAGEAL REFLUX DISEASE
     Route: 048
     Dates: start: 20071017
  3. NEXIUM [Suspect]
     Indication: GASTROOESOPHAGEAL REFLUX DISEASE
     Route: 048
     Dates: start: 20071017
  4. OMEPRAZOLE [Suspect]
     Route: 048
  5. OMEPRAZOLE [Suspect]
     Route: 048
     Dates: start: 201111
  6. OMEPRAZOLE [Suspect]
     Route: 048
     Dates: start: 20111125
  7. PREVACID [Concomitant]
     Dates: start: 200605, end: 200710
  8. PROPREM [Concomitant]
     Indication: HORMONE REPLACEMENT THERAPY
  9. HYDROCODONE/APAP [Concomitant]
     Dosage: 5-500MG, EVERY 12 HRS AS NEEDED
     Route: 048
     Dates: start: 20090702
  10. METOPROLOL [Concomitant]
     Route: 048
     Dates: start: 20071017
  11. VENLAFAXINE [Concomitant]
     Route: 048
     Dates: start: 20110513
  12. ZOLPIDEM [Concomitant]
     Route: 048
     Dates: start: 20110823
  13. ASPIRIN [Concomitant]
     Route: 048
     Dates: start: 20110719
  14. NIASPAN [Concomitant]
     Route: 048
     Dates: start: 20110719
  15. CRESTOR [Concomitant]
     Route: 048
  16. LISINOP/HCTZ [Concomitant]
     Dosage: 20-12.5 EVERY DAY
     Route: 048
     Dates: start: 20110830
  17. LYRICA [Concomitant]
  18. ULTRAM [Concomitant]
     Route: 048
  19. LISINOPRIL [Concomitant]
     Route: 048
     Dates: start: 20071023
  20. CADUET [Concomitant]
     Dosage: 10-40 MG EVERY DAY
     Route: 048
     Dates: start: 20071023
  21. LIPITOR [Concomitant]
     Route: 048

REACTIONS (23)
  - Fractured coccyx [Unknown]
  - Pelvic fracture [Unknown]
  - Pubis fracture [Unknown]
  - Fractured ischium [Unknown]
  - Neoplasm [Unknown]
  - Osteoporosis [Unknown]
  - Bone disorder [Unknown]
  - Ankylosing spondylitis [Unknown]
  - Arthritis [Unknown]
  - Type 2 diabetes mellitus [Unknown]
  - Vitamin D deficiency [Unknown]
  - Osteopenia [Unknown]
  - Rib fracture [Unknown]
  - Foot fracture [Unknown]
  - Gait disturbance [Unknown]
  - Osteoarthritis [Unknown]
  - Intervertebral disc degeneration [Unknown]
  - Spinal osteoarthritis [Unknown]
  - Arthropathy [Unknown]
  - Depression [Unknown]
  - Intervertebral disc disorder [Unknown]
  - Intervertebral disc protrusion [Unknown]
  - Spondylolisthesis [Unknown]
